FAERS Safety Report 12336760 (Version 2)
Quarter: 2016Q2

REPORT INFORMATION
  Report Type: Spontaneous
  Country: AU (occurrence: AU)
  Receive Date: 20160505
  Receipt Date: 20160509
  Transmission Date: 20160815
  Serious: Yes (Other)
  Sender: FDA-Public Use
  Company Number: AU-JNJFOC-20160427273

PATIENT
  Age: 15 Year
  Sex: Male

DRUGS (2)
  1. REMICADE [Suspect]
     Active Substance: INFLIXIMAB
     Indication: CROHN^S DISEASE
     Route: 042
  2. REMICADE [Suspect]
     Active Substance: INFLIXIMAB
     Indication: CROHN^S DISEASE
     Route: 042
     Dates: start: 201604

REACTIONS (6)
  - Diarrhoea [Unknown]
  - Urinary straining [Unknown]
  - Bladder irritation [Unknown]
  - Urinary hesitation [Unknown]
  - Bladder outlet obstruction [Unknown]
  - Dysuria [Unknown]

NARRATIVE: CASE EVENT DATE: 201604
